FAERS Safety Report 8960249 (Version 1)
Quarter: 2012Q4

REPORT INFORMATION
  Report Type: 
  Country: JP (occurrence: JP)
  Receive Date: 20121212
  Receipt Date: 20121212
  Transmission Date: 20130627
  Serious: Yes (Other)
  Sender: FDA-Public Use
  Company Number: JP-PFIZER INC-2012300789

PATIENT
  Age: 84 Year
  Sex: Male

DRUGS (2)
  1. SOLANAX [Suspect]
     Indication: ANXIOLYTIC THERAPY
     Dosage: 0.4 mg/day
     Route: 048
     Dates: end: 201211
  2. SOLANAX [Suspect]
     Dosage: 0.4 mg, 3x/day (1.2 mg/day)
     Route: 048
     Dates: start: 201211, end: 20121129

REACTIONS (5)
  - Muscle spasms [Recovered/Resolved]
  - Anxiety [Recovering/Resolving]
  - Dyskinesia [Recovered/Resolved]
  - Cancer pain [Unknown]
  - Drug withdrawal syndrome [Unknown]
